FAERS Safety Report 5312040-9 (Version None)
Quarter: 2007Q2

REPORT INFORMATION
  Report Type: 
  Country: None (occurrence: None)
  Receive Date: 20070430
  Receipt Date: 20060717
  Transmission Date: 20071010
  Serious: No
  Sender: FDA-Public Use
  Company Number: 2006UW14583

PATIENT
  Age: 760 Month
  Sex: Female
  Weight: 53.5 kg

DRUGS (2)
  1. NEXIUM [Suspect]
     Indication: GASTROOESOPHAGEAL REFLUX DISEASE
     Route: 048
     Dates: start: 20060703, end: 20060710
  2. NEXIUM [Suspect]
     Route: 048
     Dates: start: 20060711, end: 20060717

REACTIONS (5)
  - DRY THROAT [None]
  - EAR DISCOMFORT [None]
  - EAR PAIN [None]
  - RASH PRURITIC [None]
  - THROAT TIGHTNESS [None]
